FAERS Safety Report 11539522 (Version 1)
Quarter: 2015Q3

REPORT INFORMATION
  Report Type: Spontaneous
  Country: GB (occurrence: GB)
  Receive Date: 20150923
  Receipt Date: 20150923
  Transmission Date: 20151125
  Serious: Yes (Hospitalization)
  Sender: FDA-Public Use
  Company Number: GB-ACTAVIS-2015-20169

PATIENT
  Age: 19 Year
  Sex: Male

DRUGS (2)
  1. LANSOPRAZOLE. [Concomitant]
     Active Substance: LANSOPRAZOLE
     Indication: PRODUCT USED FOR UNKNOWN INDICATION
     Dosage: UNK
     Route: 065
  2. IBUPROFEN (UNKNOWN) [Suspect]
     Active Substance: IBUPROFEN
     Indication: PERICARDITIS
     Dosage: 400 MG, TID
     Route: 048
     Dates: start: 20150901, end: 20150903

REACTIONS (1)
  - Gastric ulcer [Not Recovered/Not Resolved]

NARRATIVE: CASE EVENT DATE: 20150901
